FAERS Safety Report 4681003-9 (Version None)
Quarter: 2005Q2

REPORT INFORMATION
  Report Type: 
  Country: None (occurrence: None)
  Receive Date: 20050601
  Receipt Date: 20050601
  Transmission Date: 20051028
  Serious: Yes (Life-Threatening, Hospitalization, Disabling)
  Sender: FDA-Public Use
  Company Number: None

PATIENT
  Age: 60 Year
  Sex: Female
  Weight: 65.7716 kg

DRUGS (4)
  1. NORVASC [Suspect]
     Indication: BLOOD PRESSURE
     Dosage: 5 MG
     Route: 048
     Dates: start: 20040210, end: 20040520
  2. AVAPRO [Suspect]
     Indication: BLOOD PRESSURE
     Dosage: 150 MG
     Route: 048
     Dates: start: 20050220, end: 20051015
  3. LIPITOR [Suspect]
     Indication: BLOOD PRESSURE
     Dosage: 10 MG ORAL
     Route: 048
     Dates: start: 20040210, end: 20040520
  4. ZESTRIL [Suspect]
     Indication: BLOOD PRESSURE
     Dosage: 10 MG ORAL
     Route: 048
     Dates: start: 20050220, end: 20051015

REACTIONS (13)
  - ABDOMINAL PAIN UPPER [None]
  - BRONCHITIS [None]
  - CHOKING [None]
  - EYE DISORDER [None]
  - FATIGUE [None]
  - INFLUENZA [None]
  - JOINT DISLOCATION [None]
  - JOINT SWELLING [None]
  - MUSCLE INJURY [None]
  - MUSCLE SPASMS [None]
  - PHARYNGEAL OEDEMA [None]
  - SWOLLEN TONGUE [None]
  - VOMITING [None]
